FAERS Safety Report 19897847 (Version 5)
Quarter: 2022Q1

REPORT INFORMATION
  Report Type: Spontaneous
  Country: DE (occurrence: DE)
  Receive Date: 20210930
  Receipt Date: 20220311
  Transmission Date: 20220423
  Serious: Yes (Hospitalization, Other)
  Sender: FDA-Public Use
  Company Number: DE-ROCHE-2546129

PATIENT
  Age: 42 Year
  Sex: Female
  Weight: 61 kg

DRUGS (32)
  1. PANTOPRAZOLE [Suspect]
     Active Substance: PANTOPRAZOLE
     Indication: Product used for unknown indication
     Dosage: 20 MILLIGRAM
     Route: 065
  2. OXYCODONE [Suspect]
     Active Substance: OXYCODONE
     Indication: Pain
     Dosage: 10 MILLIGRAM, BID, TOGETHER WITH NALOXON
     Route: 065
  3. OXYCODONE [Suspect]
     Active Substance: OXYCODONE
     Dosage: 20 MILLIGRAM, BID
     Route: 065
     Dates: end: 20210513
  4. NALOXONE HYDROCHLORIDE [Suspect]
     Active Substance: NALOXONE HYDROCHLORIDE
     Indication: Product used for unknown indication
     Dosage: 5 MILLIGRAM, BID, TOGETHER WITH OXYCODON
     Route: 065
     Dates: end: 20210513
  5. NALOXONE HYDROCHLORIDE [Suspect]
     Active Substance: NALOXONE HYDROCHLORIDE
     Indication: Product used for unknown indication
  6. NALOXONE HYDROCHLORIDE [Suspect]
     Active Substance: NALOXONE HYDROCHLORIDE
     Indication: Product used for unknown indication
  7. OCREVUS [Suspect]
     Active Substance: OCRELIZUMAB
     Indication: Secondary progressive multiple sclerosis
     Dosage: 300 MILLIGRAM, UNK INFUSION, SOLUTION
     Route: 042
     Dates: start: 20200206
  8. OCREVUS [Suspect]
     Active Substance: OCRELIZUMAB
     Dosage: 600 MILLIGRAM, UNK, 2X 10 MILLILITRES, INFUSION, SOLUTION
     Route: 042
     Dates: start: 20200813
  9. OCREVUS [Suspect]
     Active Substance: OCRELIZUMAB
     Dosage: 300 MILLIGRAM, INFUSION, SOLUTION
     Route: 042
     Dates: start: 20200220
  10. OCREVUS [Suspect]
     Active Substance: OCRELIZUMAB
     Dosage: 600 MILLIGRAM, UNK
     Route: 042
     Dates: start: 20210715
  11. NABIXIMOLS [Suspect]
     Active Substance: NABIXIMOLS
     Indication: Product used for unknown indication
     Dosage: 2 DOSAGE FORM, 2-2-2, 2 PUFFS EACH ; TIME INTERVAL: 0.16 D
     Route: 065
     Dates: start: 202007
  12. NABIXIMOLS [Suspect]
     Active Substance: NABIXIMOLS
     Indication: Product used for unknown indication
  13. CORTISONE [Suspect]
     Active Substance: CORTISONE
     Dosage: 3000 MILLIGRAM, DAILY
     Route: 065
  14. CORTISONE [Suspect]
     Active Substance: CORTISONE
     Indication: Product used for unknown indication
     Route: 065
  15. CORTISONE [Suspect]
     Active Substance: CORTISONE
     Indication: Product used for unknown indication
     Route: 065
  16. CORTISONE [Suspect]
     Active Substance: CORTISONE
     Route: 065
  17. COMIRNATY [Suspect]
     Active Substance: TOZINAMERAN
     Indication: COVID-19 immunisation
     Dosage: NEXT DOSE ON: 28/MAY/2021 ()
     Route: 065
     Dates: start: 20210428
  18. MIRTAZAPINE [Concomitant]
     Active Substance: MIRTAZAPINE
     Indication: Product used for unknown indication
     Dosage: 7.5 MILLIGRAM, UNK
     Route: 065
  19. ACETAMINOPHEN [Concomitant]
     Active Substance: ACETAMINOPHEN
     Indication: Product used for unknown indication
     Dosage: UP TO 3 TIMES PER DAY ()
     Route: 065
  20. DULOXETINE [Concomitant]
     Active Substance: DULOXETINE
     Indication: Product used for unknown indication
     Dosage: 30 MILLIGRAM, BID, 1-0-1
     Route: 065
  21. MOVICOL [Concomitant]
     Active Substance: POLYETHYLENE GLYCOL 3350\POTASSIUM CHLORIDE\SODIUM BICARBONATE\SODIUM CHLORIDE
     Indication: Product used for unknown indication
     Dosage: 1-0-0 ()
     Route: 065
  22. AMITRIPTYLINE [Concomitant]
     Active Substance: AMITRIPTYLINE
     Indication: Pain
     Dosage: 25 MILLIGRAM, DAILY
     Route: 048
     Dates: start: 2019
  23. AMITRIPTYLINE [Concomitant]
     Active Substance: AMITRIPTYLINE
     Dosage: 50 MILLIGRAM, DAILY, 0-0-1
     Route: 065
  24. AMITRIPTYLINE [Concomitant]
     Active Substance: AMITRIPTYLINE
     Dosage: 25 MILLIGRAM, DAILY, 0-0-1
     Route: 065
  25. PREGABALIN [Concomitant]
     Active Substance: PREGABALIN
     Indication: Pain
     Dosage: 100 MILLIGRAM, 2-2-2 ; TIME INTERVAL:
     Route: 065
  26. PREGABALIN [Concomitant]
     Active Substance: PREGABALIN
     Dosage: 600 MILLIGRAM, UNK
     Route: 048
     Dates: start: 2019
  27. PREGABALIN [Concomitant]
     Active Substance: PREGABALIN
     Dosage: 200 MILLIGRAM, TIME INTERVAL:
     Route: 065
  28. PREGABALIN [Concomitant]
     Active Substance: PREGABALIN
     Dosage: 600 MILLIGRAM, UNK
     Route: 065
  29. PREGABALIN [Concomitant]
     Active Substance: PREGABALIN
     Route: 065
  30. PREGABALIN [Concomitant]
     Active Substance: PREGABALIN
     Route: 065
  31. PREGABALIN [Concomitant]
     Active Substance: PREGABALIN
     Dosage: 100 MILLIGRAM
     Route: 065
  32. DESOGESTREL [Concomitant]
     Active Substance: DESOGESTREL
     Indication: Product used for unknown indication
     Dosage: UNK
     Route: 065

REACTIONS (56)
  - Musculoskeletal stiffness [Recovered/Resolved]
  - Alopecia [Recovering/Resolving]
  - Coordination abnormal [Recovered/Resolved]
  - Back pain [Recovering/Resolving]
  - Sensory disturbance [Recovering/Resolving]
  - Menstruation irregular [Unknown]
  - Fatigue [Recovered/Resolved]
  - Asthenia [Recovered/Resolved]
  - Pain in extremity [Not Recovered/Not Resolved]
  - Arthralgia [Recovering/Resolving]
  - Fatigue [Recovered/Resolved]
  - Multiple sclerosis relapse [Recovered/Resolved]
  - Odynophagia [Recovering/Resolving]
  - Irritability [Recovering/Resolving]
  - Tongue movement disturbance [Recovering/Resolving]
  - Chills [Recovered/Resolved]
  - Cognitive disorder [Recovered/Resolved]
  - Fungal skin infection [Recovered/Resolved]
  - Feeling cold [Recovered/Resolved]
  - Memory impairment [Unknown]
  - Tooth injury [Recovered/Resolved]
  - Joint range of motion decreased [Recovered/Resolved]
  - Vomiting [Recovered/Resolved]
  - Dysphagia [Recovered/Resolved]
  - Eye pain [Recovered/Resolved]
  - Painful respiration [Recovered/Resolved]
  - Dyskinesia [Recovered/Resolved]
  - Off label use [Unknown]
  - Muscle spasms [Recovered/Resolved]
  - Constipation [Recovered/Resolved]
  - Fatigue [Recovered/Resolved]
  - Photophobia [Recovered/Resolved]
  - Fatigue [Recovered/Resolved]
  - Muscle spasticity [Recovered/Resolved]
  - Chills [Recovered/Resolved]
  - Mood swings [Recovered/Resolved]
  - Anal incontinence [Recovered/Resolved]
  - Dyspnoea [Recovered/Resolved]
  - Fall [Unknown]
  - Speech disorder [Recovered/Resolved]
  - Dry skin [Recovered/Resolved]
  - Vaginal discharge [Unknown]
  - Loss of consciousness [Unknown]
  - Hyperacusis [Recovered/Resolved]
  - Ocular discomfort [Recovering/Resolving]
  - Head discomfort [Recovered/Resolved]
  - Muscular weakness [Recovered/Resolved]
  - Pain [Recovering/Resolving]
  - Headache [Not Recovered/Not Resolved]
  - Urinary incontinence [Recovered/Resolved]
  - Back pain [Recovered/Resolved]
  - Thyroid mass [Not Recovered/Not Resolved]
  - Benign neoplasm of thyroid gland [Not Recovered/Not Resolved]
  - Sleep apnoea syndrome [Recovered/Resolved]
  - Pruritus [Recovered/Resolved]
  - Photophobia [Recovered/Resolved]

NARRATIVE: CASE EVENT DATE: 20200206
